FAERS Safety Report 15507845 (Version 1)
Quarter: 2018Q4

REPORT INFORMATION
  Report Type: Report from Study
  Country: AU (occurrence: AU)
  Receive Date: 20181016
  Receipt Date: 20181016
  Transmission Date: 20190205
  Serious: Yes (Other)
  Sender: FDA-Public Use
  Company Number: AU-GILEAD-2018-0368111

PATIENT
  Age: 59 Year
  Sex: Male

DRUGS (11)
  1. SEVELAMER [Concomitant]
     Active Substance: SEVELAMER
  2. BACTRIM DS [Concomitant]
     Active Substance: SULFAMETHOXAZOLE\TRIMETHOPRIM
  3. XARELTO [Concomitant]
     Active Substance: RIVAROXABAN
  4. PROGRAF [Concomitant]
     Active Substance: TACROLIMUS\TACROLIMUS ANHYDROUS
  5. BISOPROLOL [Concomitant]
     Active Substance: BISOPROLOL
  6. PREDNISOLONE. [Concomitant]
     Active Substance: PREDNISOLONE
  7. MELATONIN [Concomitant]
     Active Substance: MELATONIN
  8. CELLCEPT [Concomitant]
     Active Substance: MYCOPHENOLATE MOFETIL\MYCOPHENOLATE MOFETIL HYDROCHLORIDE
  9. SOFOSBUVIR W/VELPATASVIR [Suspect]
     Active Substance: SOFOSBUVIR\VELPATASVIR
     Indication: CHRONIC HEPATITIS C
     Dosage: UNK
     Route: 065
     Dates: start: 2018
  10. CALCINOL                           /00944201/ [Concomitant]
  11. RANITIDINE. [Concomitant]
     Active Substance: RANITIDINE

REACTIONS (2)
  - Treatment failure [Unknown]
  - Liver transplant [Unknown]

NARRATIVE: CASE EVENT DATE: 2018
